FAERS Safety Report 8809697 (Version 1)
Quarter: 2012Q4

REPORT INFORMATION
  Report Type: 
  Country: US (occurrence: US)
  Receive Date: 20120926
  Receipt Date: 20120926
  Transmission Date: 20130627
  Serious: No
  Sender: FDA-Public Use
  Company Number: US-ASTRAZENECA-2012SE70441

PATIENT
  Age: 75 Year
  Sex: Male
  Weight: 96.2 kg

DRUGS (2)
  1. NEXIUM [Suspect]
     Indication: ULCER
     Route: 048
     Dates: start: 20120807
  2. OMEPRAZOLE [Suspect]
     Indication: ULCER
     Route: 048
     Dates: end: 20120807

REACTIONS (3)
  - Pain [Recovered/Resolved]
  - Off label use [Unknown]
  - Drug ineffective [Unknown]
